FAERS Safety Report 5492257-3 (Version None)
Quarter: 2007Q4

REPORT INFORMATION
  Report Type: 
  Country: None (occurrence: None)
  Receive Date: 20071022
  Receipt Date: 20071017
  Transmission Date: 20080405
  Serious: Yes (Life-Threatening)
  Sender: FDA-Public Use
  Company Number: NO-ASTRAZENECA-2007SE05547

PATIENT
  Sex: Female
  Weight: 70 kg

DRUGS (2)
  1. NAROPIN [Suspect]
     Indication: ANAESTHESIA
     Route: 050
  2. MARCAINE [Suspect]
     Indication: SPINAL ANAESTHESIA
     Route: 037

REACTIONS (2)
  - CARDIAC ARREST [None]
  - OVERDOSE [None]
